FAERS Safety Report 24240929 (Version 4)
Quarter: 2024Q4

REPORT INFORMATION
  Report Type: Report from Study
  Country: US (occurrence: US)
  Receive Date: 20240823
  Receipt Date: 20241111
  Transmission Date: 20250114
  Serious: Yes (Hospitalization)
  Sender: DECIPHERA PHARMACEUTICALS
  Company Number: US-DECIPHERA PHARMACEUTICALS LLC-2024US000711

PATIENT
  Age: 61 Year
  Sex: Male
  Weight: 64.9 kg

DRUGS (3)
  1. QINLOCK [Suspect]
     Active Substance: RIPRETINIB
     Indication: Gastrointestinal stromal tumour
     Dosage: 100 MILLIGRAM, QD
     Route: 048
     Dates: start: 20240724, end: 202408
  2. QINLOCK [Suspect]
     Active Substance: RIPRETINIB
     Dosage: 150 MILLIGRAM, QD
     Route: 048
     Dates: start: 202408, end: 20240929
  3. QINLOCK [Suspect]
     Active Substance: RIPRETINIB
     Dosage: 150 MILLIGRAM, QD
     Route: 048
     Dates: start: 2024, end: 20241030

REACTIONS (9)
  - Hospitalisation [Unknown]
  - Disease progression [Unknown]
  - Skin exfoliation [Unknown]
  - Decreased appetite [Unknown]
  - Asthenia [Unknown]
  - Abdominal pain upper [Not Recovered/Not Resolved]
  - Constipation [Unknown]
  - Product dose omission in error [Unknown]
  - Underdose [Unknown]

NARRATIVE: CASE EVENT DATE: 20240101
